FAERS Safety Report 15043030 (Version 1)
Quarter: 2018Q2

REPORT INFORMATION
  Report Type: Report from Study
  Country: None (occurrence: BR)
  Receive Date: 20180621
  Receipt Date: 20180621
  Transmission Date: 20180711
  Serious: Yes (Hospitalization, Other)
  Sender: FDA-Public Use
  Company Number: BR-ABBVIE-18K-020-2389570-00

PATIENT
  Age: 64 Year
  Sex: Female
  Weight: 78 kg

DRUGS (5)
  1. SELOZOK [Concomitant]
     Active Substance: METOPROLOL SUCCINATE
     Indication: HYPOTENSION
  2. PURAN [Concomitant]
     Active Substance: LEVOTHYROXINE SODIUM
     Indication: THYROID DISORDER
  3. HUMIRA [Suspect]
     Active Substance: ADALIMUMAB
     Indication: CROHN^S DISEASE
     Route: 058
     Dates: start: 20170915, end: 20180520
  4. AZATHIOPRINE. [Concomitant]
     Active Substance: AZATHIOPRINE
     Indication: GASTRIC DISORDER
  5. NEXIUM [Concomitant]
     Active Substance: ESOMEPRAZOLE MAGNESIUM
     Indication: GASTRIC DISORDER

REACTIONS (10)
  - Coronary artery occlusion [Recovered/Resolved]
  - Cardiac disorder [Recovered/Resolved]
  - Kidney perforation [Recovering/Resolving]
  - Post procedural complication [Recovering/Resolving]
  - Anal inflammation [Unknown]
  - Procedural intestinal perforation [Recovering/Resolving]
  - Osteoporosis [Not Recovered/Not Resolved]
  - Stress [Not Recovered/Not Resolved]
  - Hypertension [Unknown]
  - Nausea [Recovered/Resolved with Sequelae]

NARRATIVE: CASE EVENT DATE: 201801
